FAERS Safety Report 16990213 (Version 3)
Quarter: 2020Q1

REPORT INFORMATION
  Report Type: Spontaneous
  Country: US (occurrence: US)
  Receive Date: 20191104
  Receipt Date: 20200304
  Transmission Date: 20200409
  Serious: Yes (Hospitalization, Other)
  Sender: FDA-Public Use
  Company Number: US-JNJFOC-20191047751

PATIENT
  Sex: Male

DRUGS (1)
  1. ZYTIGA [Suspect]
     Active Substance: ABIRATERONE ACETATE
     Indication: PRODUCT USED FOR UNKNOWN INDICATION
     Dosage: 4 TABLETS ONCE DAILY
     Route: 048

REACTIONS (6)
  - Atrial fibrillation [Unknown]
  - Cystitis [Unknown]
  - Sepsis [Unknown]
  - Sternal fracture [Unknown]
  - Accident [Unknown]
  - Cardiac contusion [Unknown]
